FAERS Safety Report 13080583 (Version 1)
Quarter: 2017Q1

REPORT INFORMATION
  Report Type: Spontaneous
  Country: SE (occurrence: SE)
  Receive Date: 20170103
  Receipt Date: 20170103
  Transmission Date: 20170428
  Serious: Yes (Hospitalization)
  Sender: FDA-Public Use
  Company Number: SE-JNJFOC-20161226902

PATIENT
  Age: 74 Year
  Sex: Male
  Weight: 56 kg

DRUGS (2)
  1. XARELTO [Suspect]
     Active Substance: RIVAROXABAN
     Indication: PULMONARY EMBOLISM
     Dosage: DOSE: UNKNOWN
     Route: 048
  2. INNOHEP [Concomitant]
     Active Substance: TINZAPARIN SODIUM
     Dosage: DOSE: UNKNOWN
     Route: 065

REACTIONS (1)
  - Intestinal ischaemia [Not Recovered/Not Resolved]

NARRATIVE: CASE EVENT DATE: 2016
